FAERS Safety Report 7920346-X (Version None)
Quarter: 2011Q4

REPORT INFORMATION
  Report Type: 
  Country: None (occurrence: None)
  Receive Date: 20111117
  Receipt Date: 20111103
  Transmission Date: 20120403
  Serious: No
  Sender: FDA-Public Use
  Company Number: CA-ELI_LILLY_AND_COMPANY-CA201111000770

PATIENT
  Sex: Male

DRUGS (9)
  1. ZYPREXA [Suspect]
     Indication: SCHIZOPHRENIA
     Dosage: 5 MG, UNK
  2. COGENTIN [Concomitant]
  3. ALTACE [Concomitant]
  4. ZYPREXA [Suspect]
     Dosage: 10 MG, UNK
  5. NOZINAN [Concomitant]
  6. HALDOL [Concomitant]
  7. SEROQUEL [Concomitant]
  8. ZYPREXA [Suspect]
     Indication: SCHIZOPHRENIA
     Dosage: 10 MG, UNK
  9. ZYPREXA [Suspect]
     Dosage: 5 MG, UNK

REACTIONS (5)
  - BLOOD TRIGLYCERIDES INCREASED [None]
  - HEPATIC STEATOSIS [None]
  - HYPERGLYCAEMIA [None]
  - DIABETES MELLITUS [None]
  - ANAEMIA [None]
